FAERS Safety Report 4387768-8 (Version None)
Quarter: 2004Q2

REPORT INFORMATION
  Report Type: 
  Country: None (occurrence: None)
  Receive Date: 20040630
  Receipt Date: 20040618
  Transmission Date: 20050107
  Serious: Yes (Hospitalization)
  Sender: FDA-Public Use
  Company Number: JP-BRISTOL-MYERS SQUIBB COMPANY-12624946

PATIENT
  Age: 82 Year
  Sex: Female

DRUGS (4)
  1. GATIFLO TABS [Suspect]
     Indication: PYELONEPHRITIS ACUTE
     Route: 051
     Dates: start: 20040512, end: 20040515
  2. SPIRONOLACTONE [Interacting]
     Route: 051
     Dates: start: 20040407, end: 20040515
  3. GASMOTIN [Concomitant]
     Route: 051
     Dates: start: 20040507, end: 20040515
  4. GASCON [Concomitant]
     Route: 051
     Dates: start: 20040407, end: 20040515

REACTIONS (3)
  - DIABETIC COMA [None]
  - DRUG INTERACTION [None]
  - RENAL FAILURE ACUTE [None]
